FAERS Safety Report 8436830-9 (Version None)
Quarter: 2012Q2

REPORT INFORMATION
  Report Type: 
  Country: None (occurrence: None)
  Receive Date: 20120614
  Receipt Date: 20120604
  Transmission Date: 20120825
  Serious: No
  Sender: FDA-Public Use
  Company Number: US-B.I. PHARMACEUTICALS,INC./RIDGEFIELD-2012-BP-12945BP

PATIENT
  Sex: Female

DRUGS (13)
  1. LIPITOR [Concomitant]
     Indication: BLOOD CHOLESTEROL INCREASED
     Dosage: 10 MG
     Route: 048
     Dates: start: 20080101
  2. FLECAINIDE ACETATE [Concomitant]
     Indication: ATRIAL FIBRILLATION
     Dosage: 200 MG
     Route: 048
     Dates: start: 20100101
  3. SYNTHROID [Concomitant]
     Indication: THYROID DISORDER
     Dosage: 0.25 MG
     Route: 048
     Dates: start: 20110101
  4. SPIRIVA [Suspect]
     Indication: CHRONIC OBSTRUCTIVE PULMONARY DISEASE
     Dosage: 18 MCG
     Route: 055
     Dates: start: 20120521
  5. XOPENEX [Concomitant]
     Indication: CHRONIC OBSTRUCTIVE PULMONARY DISEASE
     Route: 055
  6. NORVASC [Concomitant]
     Indication: HYPERTENSION
     Dosage: 10 MG
     Route: 048
     Dates: start: 20080101
  7. TOPROL-XL [Concomitant]
     Indication: HYPERTENSION
     Dosage: 75 MG
     Route: 048
     Dates: start: 20080101
  8. TYLENOL ARTHRITIS STRENGTH [Concomitant]
     Indication: ARTHRITIS
     Route: 048
  9. VITAMIN D [Concomitant]
     Indication: SUPPLEMENTATION THERAPY
  10. GAS-X [Concomitant]
     Indication: ABDOMINAL DISCOMFORT
     Route: 048
  11. HYDROCHLOROTHIAZIDE [Concomitant]
     Indication: HYPERTENSION
     Dosage: 25 MG
     Route: 048
     Dates: start: 20080101
  12. XALATAN [Concomitant]
     Indication: GLAUCOMA
     Dates: start: 20070101
  13. ASPIRIN [Concomitant]
     Indication: PROPHYLAXIS
     Dosage: 81 MG
     Route: 048

REACTIONS (1)
  - HYPERTENSION [None]
